FAERS Safety Report 6932525-9 (Version None)
Quarter: 2010Q3

REPORT INFORMATION
  Report Type: 
  Country: None (occurrence: None)
  Receive Date: 20100819
  Receipt Date: 20100809
  Transmission Date: 20110219
  Serious: Yes (Other)
  Sender: FDA-Public Use
  Company Number: GR-PFIZER INC-2010100359

PATIENT
  Age: 62 Year

DRUGS (1)
  1. SUNITINIB MALATE [Suspect]
     Indication: METASTATIC RENAL CELL CARCINOMA
     Dosage: 50 MG, 1X/DAY, FOR 4 WEEKS EVERY 6 WEEKS
     Route: 048
     Dates: start: 20080101

REACTIONS (10)
  - ABDOMINAL ABSCESS [None]
  - ANAEMIA [None]
  - BLOOD ALKALINE PHOSPHATASE INCREASED [None]
  - BLOOD CREATINE INCREASED [None]
  - BONE ABSCESS [None]
  - C-REACTIVE PROTEIN INCREASED [None]
  - FLANK PAIN [None]
  - HYPERTENSION [None]
  - RESPIRATORY RATE INCREASED [None]
  - THROMBOCYTOPENIA [None]
